FAERS Safety Report 5656098-6 (Version None)
Quarter: 2008Q1

REPORT INFORMATION
  Report Type: 
  Country: None (occurrence: None)
  Receive Date: 20080305
  Receipt Date: 20080225
  Transmission Date: 20080703
  Serious: Yes (Disabling)
  Sender: FDA-Public Use
  Company Number: CIP08000292

PATIENT
  Age: 71 Year
  Sex: Female
  Weight: 55.3 kg

DRUGS (8)
  1. ACTONEL [Suspect]
     Indication: OSTEOPOROSIS
     Dosage: 35 MG ONCE WEEKLY, ORAL
     Route: 048
     Dates: start: 20030101, end: 20040101
  2. FOSAMAX [Suspect]
     Indication: OSTEOPOROSIS
     Dosage: 70 MG, 1/WEEK, ORAL
     Route: 048
     Dates: start: 20040101, end: 20070101
  3. PLAVIX [Concomitant]
  4. ASPIRIN [Concomitant]
  5. LIPITOR [Concomitant]
  6. XANAX [Concomitant]
  7. PRILOSEC /00661201/ (OMEPRAZOLE) [Concomitant]
  8. ALLOPURINOL [Concomitant]

REACTIONS (1)
  - JAW DISORDER [None]
